FAERS Safety Report 19478869 (Version 2)
Quarter: 2021Q3

REPORT INFORMATION
  Report Type: Spontaneous
  Country: PE (occurrence: PE)
  Receive Date: 20210630
  Receipt Date: 20210707
  Transmission Date: 20211014
  Serious: Yes (Death, Other)
  Sender: FDA-Public Use
  Company Number: PE-009507513-2106PER007250

PATIENT
  Age: 80 Year
  Sex: Male

DRUGS (2)
  1. KEYTRUDA [Suspect]
     Active Substance: PEMBROLIZUMAB
     Indication: COLORECTAL CANCER
     Dosage: 200MG EVERY 3 WEEKS
     Dates: start: 202105, end: 20210614
  2. XELODA [Concomitant]
     Active Substance: CAPECITABINE
     Indication: COLORECTAL CANCER
     Dosage: 2G PER DAY
     Dates: start: 20210321

REACTIONS (3)
  - Hepatic failure [Unknown]
  - Acute hepatic failure [Fatal]
  - Hepatotoxicity [Unknown]

NARRATIVE: CASE EVENT DATE: 2021
